FAERS Safety Report 20370405 (Version 1)
Quarter: 2022Q1

REPORT INFORMATION
  Report Type: Spontaneous
  Country: US (occurrence: US)
  Receive Date: 20220124
  Receipt Date: 20220124
  Transmission Date: 20220423
  Serious: Yes (Hospitalization, Other)
  Sender: FDA-Public Use
  Company Number: US-SA-2022SA014035

PATIENT
  Age: 67 Year
  Sex: Female

DRUGS (14)
  1. INSULIN LISPRO [Suspect]
     Active Substance: INSULIN LISPRO
     Indication: Insulin-requiring type 2 diabetes mellitus
     Dosage: 10 U, BID (AM, PM, PLUS SLIDING SCALE WITH MEALS)
     Route: 058
  2. INSULIN LISPRO [Suspect]
     Active Substance: INSULIN LISPRO
     Dosage: 5 U, BID (AM, PM, PLUS SLIDING SCALE WITH MEALS)
     Route: 058
  3. INSULIN GLARGINE [Suspect]
     Active Substance: INSULIN GLARGINE
     Indication: Insulin-requiring type 2 diabetes mellitus
     Dosage: 45 U, QD, AM
     Route: 058
  4. INSULIN GLARGINE [Suspect]
     Active Substance: INSULIN GLARGINE
     Dosage: 25 U, QD, AM
     Route: 058
  5. ISOPROPANOLAMINE [Suspect]
     Active Substance: ISOPROPANOLAMINE
     Indication: Muscle spasms
     Route: 061
  6. LEVOTHYROXINE [Concomitant]
     Active Substance: LEVOTHYROXINE
     Dosage: 200 UG, QD
     Route: 048
  7. FUROSEMIDE [Concomitant]
     Active Substance: FUROSEMIDE
     Dosage: 80 MG, BID
     Route: 048
  8. NIFEDIPINE [Concomitant]
     Active Substance: NIFEDIPINE
     Dosage: 30 MG, BID
     Route: 048
  9. PROPRANOLOL HYDROCHLORIDE [Concomitant]
     Active Substance: PROPRANOLOL HYDROCHLORIDE
     Dosage: 120 MG, QD, EXTENDED RELEASE
     Route: 048
  10. DOXEPIN [Concomitant]
     Active Substance: DOXEPIN
     Dosage: 25 MG, QD
     Route: 048
  11. GABAPENTIN [Concomitant]
     Active Substance: GABAPENTIN
     Dosage: 300 MG, TIW
     Route: 048
  12. ATORVASTATIN [Concomitant]
     Active Substance: ATORVASTATIN
     Dosage: 40 MG, QD
     Route: 048
  13. COLESTIPOL [Concomitant]
     Active Substance: COLESTIPOL
     Dosage: 3 G, BID
     Route: 048
  14. PANTOPRAZOLE [Concomitant]
     Active Substance: PANTOPRAZOLE
     Dosage: 40 MG, BID
     Route: 048

REACTIONS (2)
  - Hypoglycaemia [Recovered/Resolved]
  - Hypothermia [Recovered/Resolved]
